FAERS Safety Report 15587580 (Version 1)
Quarter: 2018Q4

REPORT INFORMATION
  Report Type: Spontaneous
  Country: US (occurrence: US)
  Receive Date: 20181106
  Receipt Date: 20181106
  Transmission Date: 20190205
  Serious: Yes (Other)
  Sender: FDA-Public Use
  Company Number: None

PATIENT
  Age: 5 Year
  Sex: Male

DRUGS (4)
  1. GUANFACINE. [Concomitant]
     Active Substance: GUANFACINE
  2. MELATONIN [Concomitant]
     Active Substance: MELATONIN
  3. APAP [Concomitant]
     Active Substance: ACETAMINOPHEN
  4. ONDANSETRON [Suspect]
     Active Substance: ONDANSETRON
     Indication: PROPHYLAXIS OF NAUSEA AND VOMITING
     Dosage: ?          QUANTITY:0.5 TABLET(S);OTHER FREQUENCY:ONE TIME;?
     Route: 048

REACTIONS (4)
  - Rash pruritic [None]
  - Urticaria [None]
  - Crying [None]
  - Rash [None]

NARRATIVE: CASE EVENT DATE: 20181105
